FAERS Safety Report 7340134-5 (Version None)
Quarter: 2011Q1

REPORT INFORMATION
  Report Type: 
  Country: None (occurrence: None)
  Receive Date: 20110228
  Receipt Date: 20110217
  Transmission Date: 20110831
  Serious: Yes (Death)
  Sender: FDA-Public Use
  Company Number: 2011000888

PATIENT
  Age: 80 Year
  Sex: Female

DRUGS (1)
  1. TARCEVA [Suspect]
     Indication: NON-SMALL CELL LUNG CANCER
     Dosage: ORAL
     Route: 048
     Dates: start: 20091001, end: 20110214

REACTIONS (8)
  - CARDIAC ARREST [None]
  - PLEURAL EFFUSION [None]
  - DYSPNOEA [None]
  - NON-SMALL CELL LUNG CANCER [None]
  - CARDIAC FAILURE ACUTE [None]
  - INTERSTITIAL LUNG DISEASE [None]
  - CONDITION AGGRAVATED [None]
  - RESPIRATORY ARREST [None]
